FAERS Safety Report 8933781 (Version 1)
Quarter: 2012Q4

REPORT INFORMATION
  Report Type: 
  Country: US (occurrence: US)
  Receive Date: 20121129
  Receipt Date: 20121129
  Transmission Date: 20130627
  Serious: Yes (Other)
  Sender: FDA-Public Use
  Company Number: US-ELI_LILLY_AND_COMPANY-US201211008141

PATIENT
  Sex: Female
  Weight: 130.16 kg

DRUGS (7)
  1. BYDUREON [Suspect]
     Indication: TYPE 2 DIABETES MELLITUS
     Dosage: 2 mg, weekly (1/W)
     Route: 058
     Dates: start: 201210
  2. METFORMIN [Concomitant]
     Indication: TYPE 2 DIABETES MELLITUS
     Dosage: 1000 mg, bid
     Route: 048
  3. NOVOLOG MIX 70/30 [Concomitant]
  4. LEVEMIR [Concomitant]
     Indication: TYPE 2 DIABETES MELLITUS
     Dosage: UNK, each evening
     Route: 058
  5. ACTOS [Concomitant]
     Indication: TYPE 2 DIABETES MELLITUS
     Dosage: UNK, qd
     Route: 048
  6. SIMVASTATIN [Concomitant]
     Indication: TYPE 2 DIABETES MELLITUS
     Dosage: UNK, qd
     Route: 048
  7. WELLBUTRIN [Concomitant]
     Indication: TYPE 2 DIABETES MELLITUS
     Dosage: UNK, qd
     Route: 048

REACTIONS (9)
  - Fall [Unknown]
  - Balance disorder [Unknown]
  - Asthenia [Unknown]
  - Somnolence [Unknown]
  - Pollakiuria [Not Recovered/Not Resolved]
  - Nocturia [Not Recovered/Not Resolved]
  - Limb discomfort [Unknown]
  - Joint injury [Unknown]
  - Off label use [Not Recovered/Not Resolved]
